FAERS Safety Report 16683030 (Version 2)
Quarter: 2019Q4

REPORT INFORMATION
  Report Type: Spontaneous
  Country: US (occurrence: US)
  Receive Date: 20190808
  Receipt Date: 20191002
  Transmission Date: 20200122
  Serious: No
  Sender: FDA-Public Use
  Company Number: US-MYLANLABS-2019M1069870

PATIENT
  Age: 26 Year
  Sex: Male
  Weight: 64 kg

DRUGS (5)
  1. VITAMIN D                          /00107901/ [Concomitant]
     Active Substance: ERGOCALCIFEROL
  2. FISH OIL [Concomitant]
     Active Substance: FISH OIL
  3. VITAMIN E                          /00110501/ [Concomitant]
     Active Substance: TOCOPHEROL
  4. HALOPERIDOL TABLETS, USP [Suspect]
     Active Substance: HALOPERIDOL
     Indication: SCHIZOPHRENIA
     Dosage: 1 MILLIGRAM, BID (1 IN THE MORNING, AND 1 AT NIGHT)
     Route: 048
     Dates: start: 20190716
  5. VITAMIN B [Concomitant]
     Active Substance: VITAMIN B

REACTIONS (3)
  - Aphasia [Not Recovered/Not Resolved]
  - Therapeutic product effect increased [Not Recovered/Not Resolved]
  - Therapeutic product effect decreased [Unknown]

NARRATIVE: CASE EVENT DATE: 20190717
